FAERS Safety Report 7921653-7 (Version None)
Quarter: 2011Q4

REPORT INFORMATION
  Report Type: 
  Country: None (occurrence: None)
  Receive Date: 20111117
  Receipt Date: 20111111
  Transmission Date: 20120403
  Serious: Yes (Other)
  Sender: FDA-Public Use
  Company Number: US-PFIZER INC-2011277782

PATIENT
  Age: 30 Year
  Sex: Female

DRUGS (14)
  1. TACROLIMUS [Concomitant]
  2. VALSARTAN [Concomitant]
  3. ATORVASTATIN [Concomitant]
  4. METOPROLOL [Concomitant]
  5. PREDNISONE [Concomitant]
  6. INSULIN [Concomitant]
  7. GALENIC /FLUTICASONE/SALMETEROL/ [Concomitant]
  8. LOSARTAN [Concomitant]
  9. COLECALCIFEROL [Concomitant]
  10. AZATHIOPRINE [Concomitant]
  11. VORICONAZOLE [Suspect]
  12. PANCRELIPASE [Concomitant]
  13. HYDROCHLOROTHIAZIDE [Concomitant]
  14. OMEPRAZOLE [Concomitant]

REACTIONS (1)
  - PERIOSTITIS [None]
